FAERS Safety Report 7359744-4 (Version None)
Quarter: 2011Q1

REPORT INFORMATION
  Report Type: 
  Country: None (occurrence: None)
  Receive Date: 20110317
  Receipt Date: 20110225
  Transmission Date: 20110831
  Serious: No
  Sender: FDA-Public Use
  Company Number: US-B.I. PHARMACEUTICALS,INC./RIDGEFIELD-2010-BP-06325BP

PATIENT
  Sex: Female
  Weight: 83.91 kg

DRUGS (1)
  1. MIRAPEX [Suspect]
     Indication: RESTLESS LEGS SYNDROME
     Route: 048
     Dates: start: 19970701

REACTIONS (14)
  - COMPULSIVE SHOPPING [None]
  - MUSCLE TWITCHING [None]
  - OBSESSIVE-COMPULSIVE DISORDER [None]
  - EMOTIONAL DISTRESS [None]
  - VOMITING [None]
  - PAIN [None]
  - DRY EYE [None]
  - PATHOLOGICAL GAMBLING [None]
  - BINGE EATING [None]
  - FATIGUE [None]
  - DEPRESSION [None]
  - HYPERPHAGIA [None]
  - ARTHRITIS [None]
  - INSOMNIA [None]
